FAERS Safety Report 9897536 (Version 3)
Quarter: 2014Q4

REPORT INFORMATION
  Report Type: Spontaneous
  Country: US (occurrence: US)
  Receive Date: 20140214
  Receipt Date: 20141208
  Transmission Date: 20150529
  Serious: Yes (Hospitalization, Other)
  Sender: FDA-Public Use
  Company Number: US-BAYER-2014-023606

PATIENT
  Age: 27 Year
  Sex: Female
  Weight: 86.17 kg

DRUGS (3)
  1. MIRENA [Suspect]
     Active Substance: LEVONORGESTREL
     Indication: CONTRACEPTION
     Dosage: 20 MCG/24HR, CONT
     Route: 015
     Dates: start: 20081111, end: 20100114
  2. LUNESTA [Concomitant]
     Active Substance: ESZOPICLONE
     Dosage: UNK
  3. ZOLOFT [Concomitant]
     Active Substance: SERTRALINE HYDROCHLORIDE

REACTIONS (9)
  - Device failure [None]
  - Injury [None]
  - Uterine perforation [None]
  - Pain [None]
  - Emotional distress [None]
  - Procedural pain [None]
  - Scar [None]
  - Device issue [None]
  - Medical device discomfort [None]

NARRATIVE: CASE EVENT DATE: 20100114
